FAERS Safety Report 17468025 (Version 1)
Quarter: 2020Q1

REPORT INFORMATION
  Report Type: Report from Study
  Country: US (occurrence: US)
  Receive Date: 20200227
  Receipt Date: 20200227
  Transmission Date: 20200409
  Serious: Yes (Other)
  Sender: FDA-Public Use
  Company Number: US-JNJFOC-20200104506

PATIENT
  Sex: Female

DRUGS (5)
  1. METHOTREXATE. [Suspect]
     Active Substance: METHOTREXATE
     Indication: PRODUCT USED FOR UNKNOWN INDICATION
     Route: 065
  2. HUMIRA [Suspect]
     Active Substance: ADALIMUMAB
     Dosage: 80MG/0.8 ML : DAY 1 (160 MG) AND DAY 15 (80 MG)
     Route: 058
     Dates: start: 2020, end: 2020
  3. PREDNISONE. [Concomitant]
     Active Substance: PREDNISONE
  4. HUMIRA [Suspect]
     Active Substance: ADALIMUMAB
     Indication: CROHN^S DISEASE
     Dosage: 80MG/0.8 ML : DAY 1 (160 MG) AND DAY 15 (80 MG)
     Route: 058
     Dates: start: 202001, end: 202001
  5. STELARA [Suspect]
     Active Substance: USTEKINUMAB
     Indication: PRODUCT USED FOR UNKNOWN INDICATION
     Route: 058

REACTIONS (2)
  - Antibody test positive [Unknown]
  - Neuropathy peripheral [Unknown]

NARRATIVE: CASE EVENT DATE: 2015
